FAERS Safety Report 13389955 (Version 2)
Quarter: 2017Q2

REPORT INFORMATION
  Report Type: Report from Study
  Country: US (occurrence: US)
  Receive Date: 20170331
  Receipt Date: 20170516
  Transmission Date: 20170830
  Serious: Yes (Death)
  Sender: FDA-Public Use
  Company Number: US-UCBSA-2017012192

PATIENT
  Age: 93 Year
  Sex: Male

DRUGS (1)
  1. ROTIGOTINE [Suspect]
     Active Substance: ROTIGOTINE
     Indication: RESTLESS LEGS SYNDROME
     Dosage: 4 MG, ONCE DAILY (QD)
     Route: 062
     Dates: end: 20170326

REACTIONS (2)
  - Pneumonia aspiration [Fatal]
  - Overdose [Unknown]

NARRATIVE: CASE EVENT DATE: 201703
